FAERS Safety Report 22143041 (Version 1)
Quarter: 2023Q1

REPORT INFORMATION
  Report Type: Spontaneous
  Country: DE (occurrence: DE)
  Receive Date: 20230327
  Receipt Date: 20230327
  Transmission Date: 20230418
  Serious: Yes (Hospitalization, Other)
  Sender: FDA-Public Use
  Company Number: None

PATIENT
  Age: 37 Year
  Sex: Female
  Weight: 36 kg

DRUGS (6)
  1. BILTRICIDE [Suspect]
     Active Substance: PRAZIQUANTEL
     Indication: Infection parasitic
     Dosage: 1.5-0-0
     Route: 048
     Dates: start: 20221210, end: 20221211
  2. HERBALS [Concomitant]
     Active Substance: HERBALS
     Dosage: UNK, PRN
  3. GLAUBERSALZ FLUKS [Concomitant]
     Indication: Infection parasitic
     Dosage: 2 TIMES 5 TEASPOONS AT A DISTANCE OF 3 DAYS
     Route: 048
  4. LEVOTHYROXINE SODIUM [Concomitant]
     Active Substance: LEVOTHYROXINE SODIUM
     Indication: Autoimmune thyroiditis
     Dosage: 50 ?G, QD
     Route: 048
     Dates: start: 201610
  5. DIMENHYDRINATE [Concomitant]
     Active Substance: DIMENHYDRINATE
     Dosage: UNK, PRN
  6. DIETARY SUPPLEMENT\HERBALS\MILK THISTLE [Concomitant]
     Active Substance: DIETARY SUPPLEMENT\HERBALS\MILK THISTLE
     Dosage: UNK, PRN
     Route: 048

REACTIONS (9)
  - Blood sodium decreased [Recovered/Resolved]
  - Nausea [Recovered/Resolved]
  - Nausea [Recovered/Resolved]
  - Asthenia [Recovered/Resolved]
  - Malnutrition [Recovered/Resolved]
  - Polydipsia [Recovered/Resolved]
  - Weight decreased [Recovered/Resolved]
  - Gastric pH increased [Recovered/Resolved]
  - General physical health deterioration [Recovered/Resolved]

NARRATIVE: CASE EVENT DATE: 20221201
